FAERS Safety Report 4938426-X (Version None)
Quarter: 2006Q1

REPORT INFORMATION
  Report Type: 
  Country: None (occurrence: None)
  Receive Date: 20060309
  Receipt Date: 20060227
  Transmission Date: 20060701
  Serious: Yes (Other)
  Sender: FDA-Public Use
  Company Number: JP-BRISTOL-MYERS SQUIBB COMPANY-13300363

PATIENT
  Age: 67 Year
  Sex: Male

DRUGS (1)
  1. MAXIPIME [Suspect]
     Indication: POSTOPERATIVE INFECTION
     Route: 042

REACTIONS (1)
  - ALVEOLITIS ALLERGIC [None]
